FAERS Safety Report 5128451-0 (Version None)
Quarter: 2006Q4

REPORT INFORMATION
  Report Type: 
  Country: None (occurrence: None)
  Receive Date: 20061011
  Receipt Date: 20061009
  Transmission Date: 20070319
  Serious: Yes (Hospitalization)
  Sender: FDA-Public Use
  Company Number: S06-USA-03903-01

PATIENT
  Age: 76 Year
  Sex: Female

DRUGS (3)
  1. LEXAPRO [Suspect]
     Indication: DEPRESSION
     Dosage: 10 MG QD PO
     Route: 048
     Dates: start: 20060601, end: 20060901
  2. PAIN MEDICATION (NOS) [Suspect]
     Indication: PROCEDURAL PAIN
     Dates: start: 20060918
  3. LIPITOR [Concomitant]

REACTIONS (6)
  - ABDOMINAL DISTENSION [None]
  - AGGRESSION [None]
  - DISORIENTATION [None]
  - IRRITABILITY [None]
  - NIGHTMARE [None]
  - OVARIAN CANCER [None]
